FAERS Safety Report 6372193-0 (Version None)
Quarter: 2009Q3

REPORT INFORMATION
  Report Type: 
  Country: None (occurrence: None)
  Receive Date: 20090924
  Receipt Date: 20071024
  Transmission Date: 20100115
  Serious: Yes (Other)
  Sender: FDA-Public Use
  Company Number: US-ASTRAZENECA-2006UW09873

PATIENT
  Age: 15055 Day
  Sex: Female
  Weight: 96.6 kg

DRUGS (12)
  1. SEROQUEL [Suspect]
     Indication: BIPOLAR DISORDER
     Dosage: 25 MG, 100 MG, 200 MG, 300 MG
     Route: 048
     Dates: start: 20011126, end: 20051209
  2. SEROQUEL [Suspect]
     Indication: ANXIETY
     Dosage: 25 MG, 100 MG, 200 MG, 300 MG
     Route: 048
     Dates: start: 20011126, end: 20051209
  3. SEROQUEL [Suspect]
     Indication: SCHIZOPHRENIA
     Dosage: 25 MG, 100 MG, 200 MG, 300 MG
     Route: 048
     Dates: start: 20011126, end: 20051209
  4. SEROQUEL [Suspect]
     Dosage: DISPENSED 25 - 400 MG
     Route: 048
     Dates: start: 20011126
  5. SEROQUEL [Suspect]
     Dosage: DISPENSED 25 - 400 MG
     Route: 048
     Dates: start: 20011126
  6. SEROQUEL [Suspect]
     Dosage: DISPENSED 25 - 400 MG
     Route: 048
     Dates: start: 20011126
  7. CLONAZEPAM [Concomitant]
     Dates: start: 20011126
  8. ZOLOFT [Concomitant]
     Dates: start: 20011120
  9. ABILIFY [Concomitant]
     Dates: start: 20060308
  10. ABILIFY [Concomitant]
     Dates: start: 20070101, end: 20070101
  11. EFFEXOR [Concomitant]
     Dates: start: 20040911
  12. TRILEPTAL [Concomitant]
     Dates: start: 20060201

REACTIONS (8)
  - ANGINA PECTORIS [None]
  - ASTHMA [None]
  - BLOOD PRESSURE ABNORMAL [None]
  - CHEST DISCOMFORT [None]
  - HYPERTENSION [None]
  - HYPOTENSION [None]
  - MELANOCYTIC NAEVUS [None]
  - TYPE 2 DIABETES MELLITUS [None]
